FAERS Safety Report 8168550-2 (Version None)
Quarter: 2012Q1

REPORT INFORMATION
  Report Type: 
  Country: None (occurrence: None)
  Receive Date: 20120227
  Receipt Date: 20120227
  Transmission Date: 20120608
  Serious: Yes (Other)
  Sender: FDA-Public Use
  Company Number: None

PATIENT
  Age: 31 Year
  Sex: Female
  Weight: 83.914 kg

DRUGS (1)
  1. MIRENA [Suspect]
     Indication: CONTRACEPTION
     Dates: start: 20080513, end: 20120221

REACTIONS (13)
  - ASTHENIA [None]
  - MIGRAINE [None]
  - CYST [None]
  - ABDOMINAL DISTENSION [None]
  - WEIGHT INCREASED [None]
  - NECK PAIN [None]
  - DYSPAREUNIA [None]
  - DEPRESSION [None]
  - LIBIDO DECREASED [None]
  - ALOPECIA [None]
  - ACNE [None]
  - MOOD SWINGS [None]
  - HOT FLUSH [None]
